FAERS Safety Report 8084000-9 (Version None)
Quarter: 2012Q1

REPORT INFORMATION
  Report Type: 
  Country: None (occurrence: None)
  Receive Date: 20120128
  Receipt Date: 20110119
  Transmission Date: 20120608
  Serious: No
  Sender: FDA-Public Use
  Company Number: US-ABBOTT-11P-163-0699306-00

PATIENT
  Sex: Female
  Weight: 94.432 kg

DRUGS (2)
  1. METHOTREXATE [Concomitant]
     Indication: PRODUCT USED FOR UNKNOWN INDICATION
  2. HUMIRA [Suspect]
     Indication: PSORIATIC ARTHROPATHY
     Dates: start: 20100902

REACTIONS (9)
  - PHARYNGITIS [None]
  - NERVE COMPRESSION [None]
  - OROPHARYNGEAL PAIN [None]
  - NAUSEA [None]
  - VOMITING [None]
  - INJECTION SITE PAIN [None]
  - BACK INJURY [None]
  - INTERVERTEBRAL DISC DEGENERATION [None]
  - INTERVERTEBRAL DISC PROTRUSION [None]
